FAERS Safety Report 6474209-X (Version None)
Quarter: 2009Q4

REPORT INFORMATION
  Report Type: 
  Country: None (occurrence: None)
  Receive Date: 20091204
  Receipt Date: 20091204
  Transmission Date: 20100525
  Serious: Yes (Other)
  Sender: FDA-Public Use
  Company Number: US-PFIZER INC-2009256045

PATIENT
  Sex: Male
  Weight: 113 kg

DRUGS (5)
  1. VFEND [Suspect]
     Indication: ASPERGILLOSIS
     Dosage: 200 MG, 2X/DAY
     Route: 048
     Dates: start: 20090807
  2. VIAGRA [Suspect]
     Indication: ERECTILE DYSFUNCTION
     Dosage: UNK
     Dates: start: 20090801
  3. FORADIL [Concomitant]
  4. QVAR 40 [Concomitant]
  5. SPIRIVA [Concomitant]

REACTIONS (6)
  - CONFUSIONAL STATE [None]
  - DYSPNOEA [None]
  - FLUSHING [None]
  - HYPERHIDROSIS [None]
  - NIGHT BLINDNESS [None]
  - VISUAL IMPAIRMENT [None]
